FAERS Safety Report 13101303 (Version 2)
Quarter: 2017Q1

REPORT INFORMATION
  Report Type: Spontaneous
  Country: US (occurrence: US)
  Receive Date: 20170110
  Receipt Date: 20170216
  Transmission Date: 20170428
  Serious: Yes (Hospitalization, Other)
  Sender: FDA-Public Use
  Company Number: US-009507513-1701USA002332

PATIENT
  Age: 35 Year
  Sex: Male

DRUGS (2)
  1. KEYTRUDA [Suspect]
     Active Substance: PEMBROLIZUMAB
     Indication: GLIOBLASTOMA
     Dosage: 162.5 MG, Q3W
     Route: 042
     Dates: start: 20161115, end: 20170104
  2. TEMODAR [Suspect]
     Active Substance: TEMOZOLOMIDE
     Dosage: UNK
     Route: 048

REACTIONS (3)
  - Hospice care [Unknown]
  - Brain oedema [Unknown]
  - Product use issue [Unknown]

NARRATIVE: CASE EVENT DATE: 20161115
